FAERS Safety Report 10025002 (Version 1)
Quarter: 2014Q1

REPORT INFORMATION
  Report Type: Spontaneous
  Country: US (occurrence: US)
  Receive Date: 20140320
  Receipt Date: 20140320
  Transmission Date: 20141002
  Serious: Yes (Other)
  Sender: FDA-Public Use
  Company Number: US-SA-2014SA032603

PATIENT
  Age: 69 Year
  Sex: Male
  Weight: 99.79 kg

DRUGS (3)
  1. FLUDARA [Suspect]
     Indication: CHRONIC LYMPHOCYTIC LEUKAEMIA
     Dosage: FREQUENCY : D1-3 EVERY 21 DAYS
     Route: 042
     Dates: start: 20120116, end: 20120516
  2. CYTOXAN [Suspect]
     Indication: CHRONIC LYMPHOCYTIC LEUKAEMIA
     Dosage: FREQUENCY : D1-3 EVERY 21 DAYS
     Route: 042
     Dates: start: 20120116, end: 20120516
  3. RITUXAN [Suspect]
     Indication: CHRONIC LYMPHOCYTIC LEUKAEMIA
     Dosage: FREQUENCY : D1-3 EVERY 21 DAYS
     Route: 042
     Dates: start: 20120116, end: 20120516

REACTIONS (1)
  - Prostate cancer [Not Recovered/Not Resolved]
